FAERS Safety Report 17147602 (Version 3)
Quarter: 2022Q2

REPORT INFORMATION
  Report Type: Spontaneous
  Country: US (occurrence: US)
  Receive Date: 20191212
  Receipt Date: 20220520
  Transmission Date: 20220721
  Serious: Yes (Hospitalization, Disabling, Other)
  Sender: FDA-Public Use
  Company Number: US-HORIZON-PRO-0231-2019

PATIENT

DRUGS (3)
  1. PROCYSBI [Suspect]
     Active Substance: CYSTEAMINE BITARTRATE
     Indication: Cystinosis
     Dosage: 150MG (2 X 75MG CAPSULES) BY MOUTH EVERY 12 HOURS 2 SEPARATED DOSES
     Route: 065
  2. SIROLIMUS [Concomitant]
     Active Substance: SIROLIMUS
  3. CELLCEPT [Concomitant]
     Active Substance: MYCOPHENOLATE MOFETIL

REACTIONS (6)
  - Urinary tract infection [Unknown]
  - Malaise [Unknown]
  - Balance disorder [Unknown]
  - Condition aggravated [Unknown]
  - Gait inability [Not Recovered/Not Resolved]
  - Condition aggravated [Unknown]

NARRATIVE: CASE EVENT DATE: 20191001
